FAERS Safety Report 24778117 (Version 1)
Quarter: 2024Q4

REPORT INFORMATION
  Report Type: Spontaneous
  Country: FR (occurrence: FR)
  Receive Date: 20241226
  Receipt Date: 20241226
  Transmission Date: 20250115
  Serious: Yes (Other)
  Sender: PFIZER
  Company Number: None

PATIENT
  Age: 16 Year
  Sex: Male
  Weight: 52 kg

DRUGS (2)
  1. METHOTREXATE SODIUM [Suspect]
     Active Substance: METHOTREXATE SODIUM
     Indication: B-cell type acute leukaemia
     Dosage: 30 MG, WEEKLY
     Route: 048
     Dates: start: 20241113, end: 20241204
  2. MERCAPTOPURINE [Suspect]
     Active Substance: MERCAPTOPURINE
     Indication: B-cell type acute leukaemia
     Dosage: 112 MG, 1X/DAY
     Route: 048
     Dates: start: 20241022, end: 20241206

REACTIONS (1)
  - Acquired factor V deficiency [Not Recovered/Not Resolved]

NARRATIVE: CASE EVENT DATE: 20241201
